FAERS Safety Report 4821929-6 (Version None)
Quarter: 2005Q4

REPORT INFORMATION
  Report Type: 
  Country: None (occurrence: None)
  Receive Date: 20051107
  Receipt Date: 20051102
  Transmission Date: 20060501
  Serious: Yes (Hospitalization)
  Sender: FDA-Public Use
  Company Number: PHBS2005SE16156

PATIENT
  Age: 79 Year
  Sex: Female

DRUGS (13)
  1. DIOVAN [Suspect]
     Dosage: 1 DF, UNK
     Route: 048
  2. GLYTRIN [Concomitant]
  3. METFORMIN HCL [Concomitant]
     Route: 048
  4. SIMVASTATIN [Concomitant]
     Route: 048
  5. CITALOPRAM [Concomitant]
     Route: 048
  6. LEVAXIN [Concomitant]
     Route: 048
  7. ACETAMINOPHEN [Concomitant]
     Route: 048
  8. IMPUGAN [Concomitant]
     Route: 048
  9. SPIRONOLAKTON [Concomitant]
     Route: 048
  10. CITODON [Concomitant]
     Route: 048
  11. METOPROLOL SUCCINATE [Concomitant]
     Route: 048
  12. ASPIRIN [Concomitant]
     Route: 048
  13. NOVONORM [Concomitant]
     Route: 048

REACTIONS (5)
  - ANGIONEUROTIC OEDEMA [None]
  - DEPRESSED LEVEL OF CONSCIOUSNESS [None]
  - DIZZINESS [None]
  - PHARYNGEAL OEDEMA [None]
  - SWELLING FACE [None]
